FAERS Safety Report 16050144 (Version 3)
Quarter: 2019Q3

REPORT INFORMATION
  Report Type: Report from Study
  Country: CA (occurrence: CA)
  Receive Date: 20190308
  Receipt Date: 20190918
  Transmission Date: 20191004
  Serious: Yes (Other)
  Sender: FDA-Public Use
  Company Number: CA-ROCHE-2278436

PATIENT
  Sex: Female

DRUGS (17)
  1. OCREVUS [Suspect]
     Active Substance: OCRELIZUMAB
     Indication: PRIMARY PROGRESSIVE MULTIPLE SCLEROSIS
     Dosage: 300 MG AT DAY 0 AND 14, THEN 600 MG EVERY 6 MONTH ;ONGOING: YES
     Route: 042
     Dates: start: 20190226
  2. SYNTHROID [Concomitant]
     Active Substance: LEVOTHYROXINE SODIUM
  3. SENNA [SENNA ALEXANDRINA] [Concomitant]
     Active Substance: SENNA LEAF
  4. ASPIRIN [ACETYLSALICYLIC ACID] [Concomitant]
     Active Substance: ASPIRIN
  5. TORAMIDE [Concomitant]
  6. GLICLAZIDE [Concomitant]
     Active Substance: GLICLAZIDE
     Route: 065
  7. TYLENOL [Concomitant]
     Active Substance: ACETAMINOPHEN
     Route: 065
  8. VITAMIN B [Concomitant]
     Active Substance: VITAMIN B
     Dosage: ONCE A MONTH
     Route: 065
  9. HUMALOG [Concomitant]
     Active Substance: INSULIN LISPRO
  10. CITALOPRAM [Concomitant]
     Active Substance: CITALOPRAM HYDROBROMIDE
     Route: 065
  11. BACLOFEN. [Concomitant]
     Active Substance: BACLOFEN
     Route: 065
  12. OCREVUS [Suspect]
     Active Substance: OCRELIZUMAB
     Route: 042
  13. TRULICITY [Concomitant]
     Active Substance: DULAGLUTIDE
  14. LANTUS [Concomitant]
     Active Substance: INSULIN GLARGINE
  15. DICLOFENAC [Concomitant]
     Active Substance: DICLOFENAC
  16. PANTOPRAZOLE [Concomitant]
     Active Substance: PANTOPRAZOLE
     Route: 065
  17. HYDROMORPH CONTIN [Concomitant]
     Active Substance: HYDROMORPHONE

REACTIONS (14)
  - Neck pain [Unknown]
  - Blood pressure increased [Unknown]
  - Dry throat [Recovered/Resolved]
  - Pain in extremity [Not Recovered/Not Resolved]
  - Nasopharyngitis [Unknown]
  - Injury [Unknown]
  - Headache [Unknown]
  - Blood glucose increased [Unknown]
  - Rash [Recovering/Resolving]
  - Photopsia [Unknown]
  - Somnolence [Unknown]
  - Mood swings [Not Recovered/Not Resolved]
  - Dizziness [Recovered/Resolved]
  - Fatigue [Recovered/Resolved]
